FAERS Safety Report 18716799 (Version 1)
Quarter: 2021Q1

REPORT INFORMATION
  Report Type: Spontaneous
  Country: US (occurrence: US)
  Receive Date: 20210108
  Receipt Date: 20210108
  Transmission Date: 20210419
  Serious: Yes (Hospitalization)
  Sender: FDA-Public Use
  Company Number: None

PATIENT
  Age: 75 Year
  Sex: Male
  Weight: 85.05 kg

DRUGS (2)
  1. BAMLANIVIMAB. [Concomitant]
     Active Substance: BAMLANIVIMAB
     Dates: start: 20201118, end: 20201118
  2. BAMLANIVIMAB. [Suspect]
     Active Substance: BAMLANIVIMAB
     Dates: start: 20201118, end: 20201118

REACTIONS (5)
  - Acute kidney injury [None]
  - Asthenia [None]
  - Dyspnoea [None]
  - COVID-19 pneumonia [None]
  - Dehydration [None]

NARRATIVE: CASE EVENT DATE: 20210106
